FAERS Safety Report 24324691 (Version 3)
Quarter: 2025Q3

REPORT INFORMATION
  Report Type: Spontaneous
  Country: US (occurrence: US)
  Receive Date: 20240916
  Receipt Date: 20250723
  Transmission Date: 20251020
  Serious: No
  Sender: SUNOVION
  Company Number: US-SMPA-2024SPA001723AA

PATIENT

DRUGS (24)
  1. ORGOVYX [Suspect]
     Active Substance: RELUGOLIX
     Indication: Prostate cancer
     Dosage: 360 MG, SINGLE
     Route: 048
  2. ORGOVYX [Suspect]
     Active Substance: RELUGOLIX
     Dosage: 120 MG, QD
     Route: 048
  3. ATORVASTATIN CALCIUM [Concomitant]
     Active Substance: ATORVASTATIN CALCIUM
     Route: 065
  4. BICALUTAMIDE [Concomitant]
     Active Substance: BICALUTAMIDE
     Route: 065
  5. CARVEDILOL [Concomitant]
     Active Substance: CARVEDILOL
     Route: 065
  6. FUROSEMIDE [Concomitant]
     Active Substance: FUROSEMIDE
     Route: 065
  7. INSULIN LISPRO [Concomitant]
     Active Substance: INSULIN LISPRO
     Route: 065
  8. KEPPRA [Concomitant]
     Active Substance: LEVETIRACETAM
     Route: 065
  9. LIDOCAINE [Concomitant]
     Active Substance: LIDOCAINE
     Route: 065
  10. MILK OF MAGNESIA [Concomitant]
     Active Substance: MAGNESIUM HYDROXIDE
     Route: 065
  11. SENNA [Concomitant]
     Active Substance: SENNOSIDES
     Route: 065
  12. FLEET ENEMA [Concomitant]
     Active Substance: SODIUM PHOSPHATE, DIBASIC\SODIUM PHOSPHATE, MONOBASIC
     Route: 054
  13. TAMSULOSIN [Concomitant]
     Active Substance: TAMSULOSIN
     Route: 065
  14. TYLENOL [Concomitant]
     Active Substance: ACETAMINOPHEN
     Route: 065
  15. VITAMINS [Concomitant]
     Active Substance: VITAMINS
     Route: 065
  16. MYLANTA [Concomitant]
     Active Substance: ALUMINUM HYDROXIDE\DIMETHICONE\MAGNESIUM HYDROXIDE
     Route: 065
  17. Dulcolax [Concomitant]
     Route: 065
  18. ELIQUIS [Concomitant]
     Active Substance: APIXABAN
     Route: 065
  19. SODIUM FLUORIDE\STANNOUS FLUORIDE [Concomitant]
     Active Substance: SODIUM FLUORIDE\STANNOUS FLUORIDE
     Route: 065
  20. NORCO [Concomitant]
     Active Substance: ACETAMINOPHEN\HYDROCODONE BITARTRATE
     Route: 065
  21. CEFPODOXIME [Concomitant]
     Active Substance: CEFPODOXIME
     Route: 065
  22. JANUVIA [Concomitant]
     Active Substance: SITAGLIPTIN PHOSPHATE
     Route: 065
  23. LISINOPRIL [Concomitant]
     Active Substance: LISINOPRIL
     Route: 065
  24. Triple antibiotic [Concomitant]
     Route: 065

REACTIONS (4)
  - Skin laceration [Unknown]
  - Skin fragility [Unknown]
  - Skin atrophy [Unknown]
  - Urinary tract infection [Unknown]
